FAERS Safety Report 11999711 (Version 1)
Quarter: 2016Q1

REPORT INFORMATION
  Report Type: Spontaneous
  Country: US (occurrence: None)
  Receive Date: 20160203
  Receipt Date: 20160203
  Transmission Date: 20160526
  Serious: Yes (Other)
  Sender: FDA-Public Use
  Company Number: None

PATIENT
  Age: 29 Year
  Sex: Female
  Weight: 54.2 kg

DRUGS (10)
  1. RITONAVIR. [Suspect]
     Active Substance: RITONAVIR
     Indication: HIV INFECTION
     Route: 048
     Dates: start: 20151007, end: 20151113
  2. BUSCOPAN (BURYLSCOPALAMINE) [Concomitant]
  3. CETIRIZINE [Concomitant]
     Active Substance: CETIRIZINE HYDROCHLORIDE
  4. SEPTRIN (SULFAMETHOXAZOLE/TRIMETHOPRIM) [Concomitant]
  5. NEURONTIN FORTE (VITAMIN B COMPLEX) [Concomitant]
  6. PIRITON (CHLORPHENLARAMINE MALEATE) [Concomitant]
  7. EMTRICITABINE/TENOFOVIR DF [Suspect]
     Active Substance: EMTRICITABINE
     Indication: HIV INFECTION
     Dosage: 200-300 MG ONCE EVERY DAY ORAL
     Route: 048
     Dates: start: 20151007, end: 20151112
  8. DARUNAVIR [Suspect]
     Active Substance: DARUNAVIR
     Indication: HIV INFECTION
     Route: 048
     Dates: start: 20151007, end: 20151113
  9. AUGMENTIN [Concomitant]
     Active Substance: AMOXICILLIN\CLAVULANATE POTASSIUM
  10. RALTEGRAVIR. [Suspect]
     Active Substance: RALTEGRAVIR
     Indication: HIV INFECTION
     Route: 048
     Dates: start: 20151007, end: 20151113

REACTIONS (7)
  - Cough [None]
  - Fatigue [None]
  - Oral candidiasis [None]
  - Hypoaesthesia [None]
  - Hepatitis acute [None]
  - Paraesthesia [None]
  - Vulvovaginal pruritus [None]

NARRATIVE: CASE EVENT DATE: 20151112
